FAERS Safety Report 20599362 (Version 6)
Quarter: 2022Q2

REPORT INFORMATION
  Report Type: Report from Study
  Country: US (occurrence: US)
  Receive Date: 20220315
  Receipt Date: 20220525
  Transmission Date: 20220721
  Serious: Yes (Hospitalization)
  Sender: FDA-Public Use
  Company Number: US-JNJFOC-20220134211

PATIENT
  Age: 67 Year
  Sex: Female
  Weight: 76.4 kg

DRUGS (6)
  1. SELEXIPAG [Suspect]
     Active Substance: SELEXIPAG
     Indication: Pulmonary arterial hypertension
     Dosage: UPTRAVI 200 MCG ORALLY 2 TIMES DAILY
     Route: 048
     Dates: start: 20220106
  2. SELEXIPAG [Suspect]
     Active Substance: SELEXIPAG
     Route: 048
  3. SELEXIPAG [Suspect]
     Active Substance: SELEXIPAG
     Route: 048
     Dates: start: 202201
  4. SELEXIPAG [Suspect]
     Active Substance: SELEXIPAG
     Route: 048
     Dates: start: 202101
  5. ELIQUIS [Concomitant]
     Active Substance: APIXABAN
  6. SILDENAFIL CITRATE [Concomitant]
     Active Substance: SILDENAFIL CITRATE

REACTIONS (30)
  - Pain [Not Recovered/Not Resolved]
  - Vomiting [Unknown]
  - Diarrhoea [Unknown]
  - Myalgia [Not Recovered/Not Resolved]
  - Decreased appetite [Recovered/Resolved]
  - Illness [Unknown]
  - Retching [Unknown]
  - Bedridden [Unknown]
  - COVID-19 [Recovering/Resolving]
  - Haematochezia [Unknown]
  - Loss of consciousness [Unknown]
  - Concussion [Unknown]
  - Pneumonia [Unknown]
  - Influenza like illness [Unknown]
  - Nausea [Recovered/Resolved]
  - Headache [Unknown]
  - Arthralgia [Unknown]
  - Malaise [Recovering/Resolving]
  - Product label issue [Unknown]
  - Flushing [Unknown]
  - Renal disorder [Unknown]
  - Product dose omission issue [Unknown]
  - Fall [Unknown]
  - Head injury [Unknown]
  - Pain [Unknown]
  - Limb injury [Unknown]
  - Contusion [Unknown]
  - Blood potassium decreased [Unknown]
  - Blood magnesium decreased [Unknown]
  - Road traffic accident [Unknown]

NARRATIVE: CASE EVENT DATE: 20220106
